FAERS Safety Report 4277183-X (Version None)
Quarter: 2004Q1

REPORT INFORMATION
  Report Type: 
  Country: None (occurrence: None)
  Receive Date: 20040120
  Receipt Date: 19990828
  Transmission Date: 20041129
  Serious: No
  Sender: FDA-Public Use
  Company Number: 7029

PATIENT
  Age: 25 Year
  Sex: Female

DRUGS (1)
  1. DOXYCYCLINE [Suspect]
     Indication: MALARIA PROPHYLAXIS
     Dosage: PO
     Route: 048
     Dates: start: 19990601, end: 19990714

REACTIONS (2)
  - OESOPHAGEAL PAIN [None]
  - OESOPHAGITIS [None]
